FAERS Safety Report 5720089-7 (Version None)
Quarter: 2008Q2

REPORT INFORMATION
  Report Type: 
  Country: None (occurrence: None)
  Receive Date: 20080428
  Receipt Date: 20080416
  Transmission Date: 20081010
  Serious: Yes (Death, Hospitalization)
  Sender: FDA-Public Use
  Company Number: US-WYE-H03638408

PATIENT
  Age: 36 Year
  Sex: Female
  Weight: 61.29 kg

DRUGS (12)
  1. VENLAFAXINE HYDROCHLORIDE [Suspect]
     Dosage: UNKNOWN
  2. VENLAFAXINE HYDROCHLORIDE [Suspect]
     Dosage: UNKNOWN
  3. DEPAKOTE [Suspect]
     Indication: CONVULSION
     Dosage: UNKNOWN
  4. DILANTIN [Suspect]
     Indication: CONVULSION
     Dosage: UNKNOWN
  5. DILANTIN [Suspect]
     Dosage: UNKNOWN
  6. METOCLOPRAMIDE [Suspect]
     Dosage: UNKNOWN
  7. TEGRETOL [Suspect]
     Indication: CONVULSION
     Dosage: UNKNOWN
  8. KEPPRA [Suspect]
     Indication: CONVULSION
     Dosage: UNKNOWN
  9. MYSOLINE [Suspect]
     Indication: CONVULSION
     Dosage: UNKNOWN
  10. NEURONTIN [Suspect]
     Indication: CONVULSION
     Dosage: UNKNOWN
  11. KLONOPIN [Suspect]
     Indication: CONVULSION
     Dosage: UNKNOWN
  12. KLONOPIN [Suspect]
     Dosage: UNKNOWN

REACTIONS (10)
  - CLOSTRIDIUM DIFFICILE COLITIS [None]
  - DEHYDRATION [None]
  - ENCEPHALOPATHY [None]
  - HYPERCHLORAEMIA [None]
  - HYPERNATRAEMIA [None]
  - NEUROLEPTIC MALIGNANT SYNDROME [None]
  - ORAL INTAKE REDUCED [None]
  - RENAL FAILURE ACUTE [None]
  - RHABDOMYOLYSIS [None]
  - UNRESPONSIVE TO STIMULI [None]
